FAERS Safety Report 6892997-5 (Version None)
Quarter: 2010Q3

REPORT INFORMATION
  Report Type: 
  Country: None (occurrence: None)
  Receive Date: 20100731
  Receipt Date: 20090116
  Transmission Date: 20110219
  Serious: No
  Sender: FDA-Public Use
  Company Number: US-PFIZER INC-2008097156

PATIENT
  Sex: Male
  Weight: 132.43 kg

DRUGS (11)
  1. NEURONTIN [Suspect]
     Indication: ANXIETY
     Dosage: 800 MG, 3X/DAY
  2. NEURONTIN [Suspect]
     Indication: NEUROPATHY PERIPHERAL
  3. LYRICA [Suspect]
     Indication: OEDEMA PERIPHERAL
     Dosage: 50 MG, 1X/DAY
     Dates: start: 20081111, end: 20081130
  4. RANITIDINE [Concomitant]
     Indication: DYSPEPSIA
  5. CYCLOBENZAPRINE [Concomitant]
  6. HYDROCODONE BITARTRATE [Concomitant]
  7. METOPROLOL TARTRATE [Concomitant]
     Indication: CARDIAC DISORDER
     Dosage: 50 MG, UNK
  8. WARFARIN SODIUM [Concomitant]
  9. ANTICOAGULANTS [Concomitant]
  10. ALBUTEROL [Concomitant]
     Dosage: UNK
  11. COMBIVENT [Concomitant]
     Dosage: 2 INHALATIONS, 4X/DAY

REACTIONS (4)
  - ASTHENIA [None]
  - FATIGUE [None]
  - NAUSEA [None]
  - SOMNOLENCE [None]
